FAERS Safety Report 13719435 (Version 1)
Quarter: 2017Q3

REPORT INFORMATION
  Report Type: Spontaneous
  Country: US (occurrence: US)
  Receive Date: 20170705
  Receipt Date: 20170705
  Transmission Date: 20171127
  Serious: No
  Sender: FDA-Public Use
  Company Number: US-ROCHE-1879693

PATIENT
  Age: 70 Year
  Sex: Male
  Weight: 108.05 kg

DRUGS (5)
  1. GAZYVA [Suspect]
     Active Substance: OBINUTUZUMAB
     Dosage: DAY 8
     Route: 042
     Dates: start: 20170105
  2. GAZYVA [Suspect]
     Active Substance: OBINUTUZUMAB
     Route: 042
     Dates: start: 20161230
  3. GAZYVA [Suspect]
     Active Substance: OBINUTUZUMAB
     Dosage: DAY 15
     Route: 042
     Dates: start: 20170112
  4. GAZYVA [Suspect]
     Active Substance: OBINUTUZUMAB
     Indication: CHRONIC LYMPHOCYTIC LEUKAEMIA
     Dosage: LOADING DOSE (DAY1, 2) 6 TOTAL CYCLES
     Route: 042
     Dates: start: 20161229
  5. CHLORAMBUCIL [Concomitant]
     Active Substance: CHLORAMBUCIL
     Dosage: ON DAY 1 AND DAY 15 OF EACH CYCLE OF OBINUTUZUMAB
     Route: 048

REACTIONS (2)
  - No adverse event [Unknown]
  - Inappropriate schedule of drug administration [Unknown]

NARRATIVE: CASE EVENT DATE: 20170112
